FAERS Safety Report 25909420 (Version 1)
Quarter: 2025Q4

REPORT INFORMATION
  Report Type: Spontaneous
  Country: RU (occurrence: RU)
  Receive Date: 20251011
  Receipt Date: 20251011
  Transmission Date: 20260118
  Serious: No
  Sender: ANI
  Company Number: RU-ANIPHARMA-030885

PATIENT
  Age: 43 Year
  Sex: Female

DRUGS (1)
  1. FLUVOXAMINE MALEATE [Suspect]
     Active Substance: FLUVOXAMINE MALEATE
     Indication: Product used for unknown indication
     Dates: start: 20250301

REACTIONS (4)
  - Malaise [Recovered/Resolved]
  - Nausea [Recovered/Resolved]
  - Headache [Recovered/Resolved]
  - Vomiting [Recovered/Resolved]

NARRATIVE: CASE EVENT DATE: 20250820
